FAERS Safety Report 20426094 (Version 1)
Quarter: 2022Q1

REPORT INFORMATION
  Report Type: Report from Study
  Country: US (occurrence: US)
  Receive Date: 20220204
  Receipt Date: 20220204
  Transmission Date: 20220423
  Serious: No
  Sender: FDA-Public Use
  Company Number: US-EXELIXIS-CABO-21040826

PATIENT
  Sex: Male

DRUGS (9)
  1. CABOMETYX [Suspect]
     Active Substance: CABOZANTINIB S-MALATE
     Indication: Renal cancer
     Dosage: 40 MG, QD
     Route: 048
  2. CABOMETYX [Suspect]
     Active Substance: CABOZANTINIB S-MALATE
     Dosage: 40 MG, QD
     Route: 048
     Dates: start: 20210604
  3. PRAVASTATIN [Concomitant]
     Active Substance: PRAVASTATIN
  4. GEMFIBROZIL [Concomitant]
     Active Substance: GEMFIBROZIL
  5. VALSARTAN [Concomitant]
     Active Substance: VALSARTAN
  6. OMEPRAZOLE [Concomitant]
     Active Substance: OMEPRAZOLE
  7. DILTIAZEM [Concomitant]
     Active Substance: DILTIAZEM
  8. CARVEDILOL [Concomitant]
     Active Substance: CARVEDILOL
  9. AZITHROMYCIN [Concomitant]
     Active Substance: AZITHROMYCIN

REACTIONS (3)
  - Headache [Unknown]
  - Diarrhoea [Unknown]
  - Product dose omission issue [Unknown]
